FAERS Safety Report 8676224 (Version 3)
Quarter: 2013Q4

REPORT INFORMATION
  Report Type: Spontaneous
  Country: US (occurrence: US)
  Receive Date: 20120720
  Receipt Date: 20131101
  Transmission Date: 20140711
  Serious: No
  Sender: FDA-Public Use
  Company Number: US-009507513-1207USA001401

PATIENT
  Sex: Female
  Weight: 78.91 kg

DRUGS (9)
  1. PEGINTRON [Suspect]
     Indication: HEPATITIS C
     Dosage: 150 MG, QW
     Route: 058
     Dates: start: 20120210
  2. PRILOSEC [Concomitant]
  3. RIBAPAK [Concomitant]
     Dosage: 1200 MG, UNK
  4. TELAPREVIR [Concomitant]
     Dosage: 750 MG, TID
  5. AMLODIPINE [Concomitant]
  6. CHOLECALCIFEROL [Concomitant]
     Dosage: DOSE: 50000 UNITS
  7. SYNTHROID [Concomitant]
  8. HYDROCHLOROTHIAZIDE [Concomitant]
  9. CARAFATE [Concomitant]

REACTIONS (3)
  - Gingival discolouration [Unknown]
  - Oral mucosal discolouration [Unknown]
  - Dry skin [Unknown]
